FAERS Safety Report 13965458 (Version 1)
Quarter: 2017Q3

REPORT INFORMATION
  Report Type: Spontaneous
  Country: US (occurrence: US)
  Receive Date: 20170913
  Receipt Date: 20170913
  Transmission Date: 20171128
  Serious: Yes (Hospitalization)
  Sender: FDA-Public Use
  Company Number: US-STANDARD HOMEOPATHIC COMPANY-2026028

PATIENT
  Age: 43 Year
  Sex: Female

DRUGS (1)
  1. BIOPLASMA [Suspect]
     Active Substance: HOMEOPATHICS
     Indication: NASOPHARYNGITIS
     Route: 048

REACTIONS (3)
  - Seizure [None]
  - Electrolyte imbalance [None]
  - Hyponatraemia [None]

NARRATIVE: CASE EVENT DATE: 20170902
